FAERS Safety Report 18672785 (Version 2)
Quarter: 2021Q1

REPORT INFORMATION
  Report Type: Spontaneous
  Country: NL (occurrence: NL)
  Receive Date: 20201229
  Receipt Date: 20210127
  Transmission Date: 20210419
  Serious: Yes (Other)
  Sender: FDA-Public Use
  Company Number: NL-SUN PHARMACEUTICAL INDUSTRIES LTD-2020RR-273056

PATIENT
  Age: 62 Year
  Sex: Male
  Weight: 80 kg

DRUGS (7)
  1. TAMSULOSIN [Suspect]
     Active Substance: TAMSULOSIN
     Indication: BENIGN PROSTATIC HYPERPLASIA
     Dosage: 0.4 MILLIGRAM, DAILY
     Route: 065
     Dates: start: 20200212, end: 20201204
  2. BRINZOLAMIDE OOGDRUPPELS 10MG/ML / BRAND NAME NOT SPECIFIEDBRINZOLA... [Concomitant]
     Indication: PRODUCT USED FOR UNKNOWN INDICATION
     Dosage: OOGDRUPPELS, 10 MG/ML (MILLIGRAM PER MILLILITER) ()
     Route: 065
  3. METFORMINE TABLET   850MG / BRAND NAME NOT SPECIFIEDMETFORMINE TABL... [Concomitant]
     Indication: PRODUCT USED FOR UNKNOWN INDICATION
     Dosage: 1 DOSAGE FORM, BID
     Route: 065
  4. PRAVASTATINE TABLET 40MG / BRAND NAME NOT SPECIFIEDPRAVASTATINE TAB... [Concomitant]
     Indication: PRODUCT USED FOR UNKNOWN INDICATION
     Dosage: TABLET, 40 MG (MILLIGRAM) ()
     Route: 065
  5. INSULINE LISPRO 100E/ML INJVLST / HUMALOG INJVLST 100E/ML FLACON 10... [Concomitant]
     Indication: PRODUCT USED FOR UNKNOWN INDICATION
     Dosage: INJECTIEVLOEISTOF, 100 EENHEDEN/ML (EENHEDEN PER MILLILITER) (VIA POMP ONG 40 IE PD)
     Route: 065
  6. FLUTICASON INHALATIEPOEDER 250UG/DO / FLIXOTIDE DISKUS INHPDR 250MC... [Concomitant]
     Indication: PRODUCT USED FOR UNKNOWN INDICATION
     Dosage: INHALATIEPOEDER, 250 ?G/DOSIS (MICROGRAM PER DOSIS) ()
     Route: 065
  7. TAMSULOSIN [Suspect]
     Active Substance: TAMSULOSIN
     Indication: NOCTURIA

REACTIONS (3)
  - Visual impairment [Not Recovered/Not Resolved]
  - Cataract [Not Recovered/Not Resolved]
  - Retinal detachment [Not Recovered/Not Resolved]

NARRATIVE: CASE EVENT DATE: 20200530
